FAERS Safety Report 7819484-1 (Version None)
Quarter: 2011Q4

REPORT INFORMATION
  Report Type: 
  Country: None (occurrence: None)
  Receive Date: 20111018
  Receipt Date: 20110124
  Transmission Date: 20120403
  Serious: No
  Sender: FDA-Public Use
  Company Number: US-ASTRAZENECA-2011SE04188

PATIENT
  Sex: Male
  Weight: 90.7 kg

DRUGS (4)
  1. ALBUTEROL [Concomitant]
  2. SYMBICORT [Suspect]
     Indication: ASTHMA
     Dosage: UNKNOWN DOSE 2 PUFFS BID
     Route: 055
     Dates: start: 20100101
  3. ANTIBIOTIC [Concomitant]
  4. SYMBICORT [Suspect]
     Indication: CHRONIC OBSTRUCTIVE PULMONARY DISEASE
     Dosage: UNKNOWN DOSE 2 PUFFS BID
     Route: 055
     Dates: start: 20100101

REACTIONS (4)
  - COUGH [None]
  - BRONCHITIS [None]
  - NASOPHARYNGITIS [None]
  - WHEEZING [None]
